FAERS Safety Report 8879918 (Version 4)
Quarter: 2013Q1

REPORT INFORMATION
  Report Type: Spontaneous
  Country: US (occurrence: US)
  Receive Date: 20121101
  Receipt Date: 20130206
  Transmission Date: 20140127
  Serious: Yes (Death, Other)
  Sender: FDA-Public Use
  Company Number: US-BAYER-2012-113614

PATIENT
  Age: 50 Year
  Sex: Male

DRUGS (1)
  1. BETASERON [Suspect]
     Indication: MULTIPLE SCLEROSIS
     Dosage: 0.3 MG, QOD
     Dates: start: 1994

REACTIONS (10)
  - Meningitis bacterial [Fatal]
  - Subarachnoid haemorrhage [Fatal]
  - Unresponsive to stimuli [Fatal]
  - Injection site infection [None]
  - Injection site pain [None]
  - Injection site swelling [None]
  - Injection site erythema [None]
  - Headache [None]
  - Vomiting [None]
  - Speech disorder [None]
